FAERS Safety Report 16442954 (Version 1)
Quarter: 2019Q2

REPORT INFORMATION
  Report Type: Spontaneous
  Country: US (occurrence: US)
  Receive Date: 20190617
  Receipt Date: 20190617
  Transmission Date: 20190711
  Serious: Yes (Hospitalization)
  Sender: FDA-Public Use
  Company Number: US-TAKEDA-2019TUS036864

PATIENT
  Age: 18 Year
  Sex: Female
  Weight: 49.9 kg

DRUGS (6)
  1. ENTYVIO [Suspect]
     Active Substance: VEDOLIZUMAB
     Indication: COLITIS ULCERATIVE
     Dosage: 300 MILLIGRAM
     Route: 065
     Dates: start: 20180215
  2. TYLENOL [Concomitant]
     Active Substance: ACETAMINOPHEN
     Indication: PYREXIA
     Dosage: UNK, QD
     Route: 048
     Dates: start: 20190502, end: 20190502
  3. PANTOPRAZOLE SODIUM. [Concomitant]
     Active Substance: PANTOPRAZOLE SODIUM
     Indication: COLITIS ULCERATIVE
     Dosage: 40 MILLIGRAM, QD
     Route: 042
     Dates: start: 20190214
  4. BALSALAZIDE DISODIUM. [Concomitant]
     Active Substance: BALSALAZIDE DISODIUM
     Indication: COLITIS ULCERATIVE
     Dosage: 750 MILLIGRAM, BID
     Route: 048
     Dates: start: 20190214
  5. CAFFEINE. [Concomitant]
     Active Substance: CAFFEINE
     Dosage: UNK, 1/WEEK
     Route: 048
     Dates: start: 20190214
  6. MERCAPTOPURINE. [Concomitant]
     Active Substance: MERCAPTOPURINE
     Indication: COLITIS ULCERATIVE
     Dosage: 50 MILLIGRAM, QD
     Route: 048
     Dates: start: 20190214, end: 20190314

REACTIONS (2)
  - Urinary tract infection [Unknown]
  - Pregnancy [Unknown]

NARRATIVE: CASE EVENT DATE: 20190502
